FAERS Safety Report 23056244 (Version 1)
Quarter: 2023Q4

REPORT INFORMATION
  Report Type: Other
  Country: None (occurrence: AU)
  Receive Date: 20231011
  Receipt Date: 20231011
  Transmission Date: 20240110
  Serious: Yes (Death)
  Sender: FDA-Public Use
  Company Number: AU-Knight Therapeutics (USA) Inc.-2146943

PATIENT
  Age: 66 Year
  Sex: Male

DRUGS (3)
  1. IMPAVIDO [Suspect]
     Active Substance: MILTEFOSINE
     Indication: Meningoencephalitis amoebic
     Dates: start: 202206
  2. FLUCONAZOLE [Concomitant]
     Active Substance: FLUCONAZOLE
     Dates: start: 202206
  3. ALBENDAZOLE [Concomitant]
     Active Substance: ALBENDAZOLE
     Dates: start: 202206

REACTIONS (2)
  - Drug ineffective for unapproved indication [Fatal]
  - Off label use [Unknown]
